FAERS Safety Report 8158031-4 (Version None)
Quarter: 2012Q1

REPORT INFORMATION
  Report Type: 
  Country: None (occurrence: None)
  Receive Date: 20120222
  Receipt Date: 20120210
  Transmission Date: 20120608
  Serious: Yes (Other)
  Sender: FDA-Public Use
  Company Number: PHEH2012US003610

PATIENT
  Sex: Female

DRUGS (6)
  1. ALLOPURINOL [Concomitant]
     Dosage: 100 MG, UNK
  2. CALCIUM [Concomitant]
  3. PROVENTIL [Concomitant]
  4. FLOVENT [Concomitant]
  5. MULTI-VITAMINS [Concomitant]
  6. GLEEVEC [Suspect]
     Dosage: 400 MG, QD
     Route: 048

REACTIONS (3)
  - FOOT FRACTURE [None]
  - OSTEOARTHRITIS [None]
  - GOUT [None]
